FAERS Safety Report 6131318-2 (Version None)
Quarter: 2009Q1

REPORT INFORMATION
  Report Type: 
  Country: None (occurrence: None)
  Receive Date: 20090325
  Receipt Date: 20080313
  Transmission Date: 20090719
  Serious: No
  Sender: FDA-Public Use
  Company Number: US-BRISTOL-MYERS SQUIBB COMPANY-14116230

PATIENT
  Sex: Female

DRUGS (1)
  1. ERBITUX [Suspect]
     Route: 042

REACTIONS (2)
  - NAUSEA [None]
  - VOMITING [None]
